FAERS Safety Report 10700816 (Version 1)
Quarter: 2014Q4

REPORT INFORMATION
  Report Type: Spontaneous
  Country: US (occurrence: None)
  Receive Date: 20141224
  Receipt Date: 20141224
  Transmission Date: 20150529
  Serious: Yes (Hospitalization)
  Sender: FDA-Public Use
  Company Number: PHEH2013US023867

PATIENT
  Age: 32 Year
  Sex: Male

DRUGS (8)
  1. COREG [Concomitant]
     Active Substance: CARVEDILOL
  2. CLOZARIL [Suspect]
     Active Substance: CLOZAPINE
     Indication: PSYCHOTIC DISORDER
     Dosage: UKN, ORAL
     Route: 048
     Dates: start: 2003
  3. ATIVAN [Suspect]
     Active Substance: LORAZEPAM
  4. AMBIEN (ZOLPDEM TARTRATE) [Concomitant]
  5. FLUOXETINE [Concomitant]
     Active Substance: FLUOXETINE\FLUOXETINE HYDROCHLORIDE
  6. TEGRETOL (CARBAMAZEPINE) [Concomitant]
  7. BENZOTROPINE (BENZAPINE MESILATE) [Concomitant]
  8. DILTIAZEM [Concomitant]
     Active Substance: DILTIAZEM

REACTIONS (9)
  - Hallucination [None]
  - Hallucination, auditory [None]
  - Haemorrhage [None]
  - Fear [None]
  - Gasping syndrome [None]
  - Malnutrition [None]
  - Abnormal behaviour [None]
  - Aggression [None]
  - Psychotic disorder [None]
